FAERS Safety Report 8491531-6 (Version None)
Quarter: 2012Q3

REPORT INFORMATION
  Report Type: 
  Country: None (occurrence: None)
  Receive Date: 20120706
  Receipt Date: 20120627
  Transmission Date: 20120928
  Serious: Yes (Hospitalization)
  Sender: FDA-Public Use
  Company Number: JP-ABBOTT-11P-087-0721564-00

PATIENT
  Sex: Male
  Weight: 61.2 kg

DRUGS (17)
  1. MESALAMINE [Concomitant]
     Indication: CROHN'S DISEASE
     Dosage: 3000MG DAILY
     Route: 048
  2. ALBUMIN TANNATE [Concomitant]
     Indication: SUPPORTIVE CARE
  3. TPN [Concomitant]
     Indication: CROHN'S DISEASE
     Route: 048
     Dates: start: 20110512
  4. HUMIRA [Suspect]
     Dates: start: 20110524, end: 20110524
  5. CLOSTRIDIUM BUTYRICUM [Concomitant]
     Indication: CROHN'S DISEASE
  6. CHLORPHENIRAMINE MALEATE [Concomitant]
     Indication: ADMINISTRATION RELATED REACTION
     Dosage: 6MG DAILY
     Route: 048
     Dates: start: 20110228, end: 20110302
  7. HUMIRA [Suspect]
     Dates: start: 20110704
  8. HYDROCORTISONE SODIUM SUCCINATE [Concomitant]
     Indication: ADMINISTRATION RELATED REACTION
     Route: 041
     Dates: start: 20110228, end: 20110302
  9. HUMIRA [Suspect]
     Dates: start: 20110328, end: 20110411
  10. ALBUMIN TANNATE [Concomitant]
     Indication: PROPHYLAXIS AGAINST DIARRHOEA
     Dosage: 3 G DAILY
     Route: 048
  11. DIMETICONE [Concomitant]
     Indication: SUPPORTIVE CARE
     Dosage: 120 MG DAILY
     Route: 048
  12. HUMIRA [Suspect]
     Indication: CROHN'S DISEASE
     Route: 058
     Dates: start: 20110228, end: 20110228
  13. FAMOTIDINE [Concomitant]
     Indication: ADMINISTRATION RELATED REACTION
     Dosage: 20MG DAILY
     Route: 048
     Dates: start: 20110228, end: 20110302
  14. ACETAMINOPHEN [Concomitant]
     Indication: ADMINISTRATION RELATED REACTION
     Dosage: 900MG DAILY
     Dates: start: 20110228, end: 20110302
  15. SULPYRINE HYDRATE [Concomitant]
     Indication: PRODUCT USED FOR UNKNOWN INDICATION
     Dates: start: 20110228, end: 20110228
  16. HUMIRA [Suspect]
     Dates: start: 20110314, end: 20110314
  17. HUMIRA [Suspect]
     Dates: start: 20110620, end: 20110620

REACTIONS (4)
  - ILEUS [None]
  - PYREXIA [None]
  - INTESTINAL STENOSIS [None]
  - GASTROINTESTINAL INFLAMMATION [None]
